FAERS Safety Report 21752667 (Version 1)
Quarter: 2022Q4

REPORT INFORMATION
  Report Type: Spontaneous
  Country: US (occurrence: None)
  Receive Date: 20221219
  Receipt Date: 20221219
  Transmission Date: 20230113
  Serious: No
  Sender: FDA-Public Use
  Company Number: None

PATIENT
  Age: 68 Year
  Sex: Female
  Weight: 56.29 kg

DRUGS (33)
  1. LENALIDOMIDE [Suspect]
     Active Substance: LENALIDOMIDE
     Indication: Plasma cell myeloma
     Dosage: 10MG  21D ON7D OFF ORAL?
     Route: 048
     Dates: start: 202111, end: 20221209
  2. ACYCLOVIR [Concomitant]
  3. ASPIRIN [Concomitant]
  4. ATORVASTATIN [Concomitant]
  5. B COMPLEX [Concomitant]
  6. BIOTIN [Concomitant]
  7. COLACE [Concomitant]
  8. COENZYME Q10 [Concomitant]
     Active Substance: DIETARY SUPPLEMENT\UBIDECARENONE
  9. DEXAMETHASONE [Concomitant]
  10. DOCUSATE SODIUM [Concomitant]
  11. EZETIMIBE [Concomitant]
  12. FLAXSEED, HAIR SKIN + NAILS [Concomitant]
  13. HAIR VITAMINS [Concomitant]
  14. LEVOTHYROXINE [Concomitant]
  15. LOSARTAN [Concomitant]
  16. METOPROLOL [Concomitant]
  17. MILK OF MAGNESIA [Concomitant]
  18. MILK THISTLE [Concomitant]
  19. OMEGAN-3 [Concomitant]
  20. OSCAL [Concomitant]
  21. PANTOPRAZOLE [Concomitant]
  22. PREVAGIN [Concomitant]
  23. PROBIOTIC [Concomitant]
  24. PYRIDOXINE [Concomitant]
  25. PSYLLIUM FIBER [Concomitant]
  26. TUMERIC [Concomitant]
  27. URSODIOL [Concomitant]
     Active Substance: URSODIOL
  28. VELCADE [Concomitant]
  29. VITAMIN B12 [Concomitant]
  30. VITAMIN B6 [Concomitant]
  31. VITAMIN C [Concomitant]
  32. ZINC [Concomitant]
  33. PROCHLORPERAZINE [Concomitant]

REACTIONS (1)
  - COVID-19 [None]
